FAERS Safety Report 6379111-X (Version None)
Quarter: 2009Q3

REPORT INFORMATION
  Report Type: 
  Country: None (occurrence: None)
  Receive Date: 20090923
  Receipt Date: 20090923
  Transmission Date: 20100115
  Serious: Yes (Hospitalization)
  Sender: FDA-Public Use
  Company Number: None

PATIENT
  Age: 22 Year
  Sex: Female
  Weight: 77.27 kg

DRUGS (2)
  1. BACTRIM [Suspect]
     Indication: PYELONEPHRITIS
  2. DIPHENHYDRAMINE HCL [Concomitant]

REACTIONS (7)
  - CONDITION AGGRAVATED [None]
  - ERYTHEMA [None]
  - EXCORIATION [None]
  - HEART RATE INCREASED [None]
  - RASH GENERALISED [None]
  - SKIN EXFOLIATION [None]
  - URTICARIA [None]
